FAERS Safety Report 21017334 (Version 1)
Quarter: 2022Q2

REPORT INFORMATION
  Report Type: Spontaneous
  Country: US (occurrence: US)
  Receive Date: 20220628
  Receipt Date: 20220628
  Transmission Date: 20220721
  Serious: Yes (Other)
  Sender: FDA-Public Use
  Company Number: US-PFIZER INC-202200896831

PATIENT
  Sex: Male

DRUGS (4)
  1. DILANTIN [Suspect]
     Active Substance: PHENYTOIN
     Indication: Generalised tonic-clonic seizure
     Dosage: 4 CAPSULES A DAY (100 MG PER CAPSULE)
     Route: 048
     Dates: start: 1969
  2. DILANTIN [Suspect]
     Active Substance: PHENYTOIN
     Dosage: UNK, 3X/DAY
  3. MYSOLINE [Suspect]
     Active Substance: PRIMIDONE
     Indication: Generalised tonic-clonic seizure
     Dosage: 1 TABLET A DAY (250MG PER TABLET)
     Route: 048
     Dates: start: 1969
  4. PHENOBARBITAL [Suspect]
     Active Substance: PHENOBARBITAL
     Indication: Generalised tonic-clonic seizure
     Dosage: 3 TABLETS A DAY, (32.4MG PER TABLET)
     Route: 048
     Dates: start: 1969

REACTIONS (1)
  - Neuroma [Recovered/Resolved with Sequelae]
